FAERS Safety Report 4735270-3 (Version None)
Quarter: 2005Q3

REPORT INFORMATION
  Report Type: 
  Country: None (occurrence: None)
  Receive Date: 20050802
  Receipt Date: 20050720
  Transmission Date: 20060218
  Serious: Yes (Other)
  Sender: FDA-Public Use
  Company Number: 2005-0008561

PATIENT
  Age: 65 Year
  Sex: Female
  Weight: 58.5 kg

DRUGS (5)
  1. TRUVADA [Suspect]
     Indication: HIV INFECTION
     Dosage: 1 IN 1 D
  2. RITONAVIR (RITONAVIR) [Concomitant]
  3. ATAZANAVIR (ATAZANAVIR) [Concomitant]
  4. DAPSONE [Concomitant]
  5. ALTACE [Concomitant]

REACTIONS (2)
  - HAEMOLYTIC ANAEMIA [None]
  - RENAL FAILURE [None]
